FAERS Safety Report 24743415 (Version 2)
Quarter: 2024Q4

REPORT INFORMATION
  Report Type: Spontaneous
  Country: FR (occurrence: FR)
  Receive Date: 20241217
  Receipt Date: 20241226
  Transmission Date: 20250115
  Serious: Yes (Hospitalization, Other)
  Sender: AUROBINDO
  Company Number: FR-AUROBINDO-AUR-APL-2024-060500

PATIENT
  Age: 77 Year
  Sex: Male
  Weight: 78 kg

DRUGS (8)
  1. ERTAPENEM [Suspect]
     Active Substance: ERTAPENEM
     Indication: Enterobacter infection
     Dosage: 1 GRAM, TWO TIMES A DAY (EVERY 12 HOURS)
     Route: 065
  2. MEROPENEM [Suspect]
     Active Substance: MEROPENEM
     Indication: Enterobacter infection
     Dosage: 2 GRAM, 3 TIMES A DAY
     Route: 065
  3. MEROPENEM [Suspect]
     Active Substance: MEROPENEM
     Dosage: 1 GRAM
     Route: 065
  4. AMIKACIN [Suspect]
     Active Substance: AMIKACIN
     Indication: Enterobacter infection
     Dosage: 30 MILLIGRAM/KILOGRAM, SINGLE DOSE
     Route: 065
  5. CILASTATIN [Concomitant]
     Active Substance: CILASTATIN
     Indication: Antibiotic therapy
     Route: 065
  6. IMIPENEM [Concomitant]
     Active Substance: IMIPENEM
     Indication: Antibiotic therapy
     Dosage: UNK
     Route: 065
  7. RELEBACTAM [Concomitant]
     Active Substance: RELEBACTAM
     Indication: Antibiotic therapy
     Route: 065
  8. VABORBACTAM [Concomitant]
     Active Substance: VABORBACTAM
     Indication: Product used for unknown indication
     Dosage: 1 GRAM
     Route: 065

REACTIONS (3)
  - Neurotoxicity [Unknown]
  - Treatment failure [Unknown]
  - Drug ineffective [Unknown]
